FAERS Safety Report 4939393-5 (Version None)
Quarter: 2006Q1

REPORT INFORMATION
  Report Type: 
  Country: None (occurrence: None)
  Receive Date: 20060306
  Receipt Date: 20060216
  Transmission Date: 20060701
  Serious: Yes (Other)
  Sender: FDA-Public Use
  Company Number: GRP05000292

PATIENT
  Sex: Female

DRUGS (2)
  1. ACTONEL [Suspect]
     Indication: OSTEOPOROSIS
     Dosage: 35 MG, 1/WEEK, ORAL
     Route: 048
     Dates: start: 20030513
  2. CORTISONE ACETATE [Concomitant]

REACTIONS (4)
  - BONE FISTULA [None]
  - JAW DISORDER [None]
  - OSTEONECROSIS [None]
  - SINUSITIS [None]
